FAERS Safety Report 6080802-9 (Version None)
Quarter: 2009Q1

REPORT INFORMATION
  Report Type: 
  Country: None (occurrence: None)
  Receive Date: 20090217
  Receipt Date: 20090209
  Transmission Date: 20090719
  Serious: Yes (Other)
  Sender: FDA-Public Use
  Company Number: US-BIOGENIDEC-2008BI022549

PATIENT
  Age: 34 Year
  Sex: Female
  Weight: 61 kg

DRUGS (2)
  1. TYSABRI [Suspect]
     Indication: MULTIPLE SCLEROSIS
     Route: 042
     Dates: start: 20070514, end: 20070906
  2. TYSABRI [Suspect]
     Route: 042
     Dates: start: 20090202

REACTIONS (4)
  - OVARIAN CANCER [None]
  - PAIN [None]
  - PRURITUS [None]
  - URTICARIA [None]
